FAERS Safety Report 24192708 (Version 1)
Quarter: 2024Q3

REPORT INFORMATION
  Report Type: Spontaneous
  Country: US (occurrence: US)
  Receive Date: 20240809
  Receipt Date: 20240809
  Transmission Date: 20241017
  Serious: Yes (Life-Threatening, Hospitalization, Other)
  Sender: QUAGEN PHARMACEUTICALS
  Company Number: US-QUAGEN-2024QUALIT00235

PATIENT
  Age: 26 Year
  Sex: Male

DRUGS (2)
  1. OXYCODONE HYDROCHLORIDE [Suspect]
     Active Substance: OXYCODONE HYDROCHLORIDE
     Indication: Product used for unknown indication
     Dosage: 40-50 TABLETS
     Route: 048
  2. LEVETIRACETAM [Concomitant]
     Active Substance: LEVETIRACETAM
     Indication: Seizure prophylaxis
     Route: 065

REACTIONS (13)
  - Acute respiratory failure [Unknown]
  - Cardio-respiratory arrest [Unknown]
  - Rhabdomyolysis [Recovering/Resolving]
  - Acute kidney injury [Unknown]
  - Pneumonia aspiration [Unknown]
  - Toxic leukoencephalopathy [Unknown]
  - Quadriplegia [Unknown]
  - Respiratory acidosis [Unknown]
  - Extensor plantar response [Recovered/Resolved]
  - Unresponsive to stimuli [Unknown]
  - Dysarthria [Unknown]
  - Toxicity to various agents [Unknown]
  - Overdose [Unknown]
